FAERS Safety Report 18444947 (Version 1)
Quarter: 2020Q4

REPORT INFORMATION
  Report Type: Spontaneous
  Country: US (occurrence: US)
  Receive Date: 20201030
  Receipt Date: 20201030
  Transmission Date: 20210114
  Serious: Yes (Other)
  Sender: FDA-Public Use
  Company Number: US-DRREDDYS-USA/USA/20/0128438

PATIENT
  Age: 40 Year
  Sex: Female

DRUGS (3)
  1. EXEMESTANE. [Concomitant]
     Active Substance: EXEMESTANE
     Indication: THERAPEUTIC OVARIAN SUPPRESSION
  2. ZOLEDRONIC ACID. [Suspect]
     Active Substance: ZOLEDRONIC ACID
     Indication: THERAPEUTIC OVARIAN SUPPRESSION
  3. GOSERELIN [Concomitant]
     Active Substance: GOSERELIN
     Indication: THERAPEUTIC OVARIAN SUPPRESSION

REACTIONS (1)
  - Rhabdomyolysis [Unknown]
